FAERS Safety Report 5861509-7 (Version None)
Quarter: 2008Q3

REPORT INFORMATION
  Report Type: 
  Country: None (occurrence: None)
  Receive Date: 20080827
  Receipt Date: 20080523
  Transmission Date: 20090109
  Serious: No
  Sender: FDA-Public Use
  Company Number: US-ABBOTT-08P-163-0453283-00

PATIENT
  Sex: Male
  Weight: 81.72 kg

DRUGS (6)
  1. COATED PDS [Suspect]
     Indication: HIGH DENSITY LIPOPROTEIN
     Route: 048
     Dates: start: 20080528
  2. COATED PDS [Suspect]
     Route: 048
     Dates: start: 20080523, end: 20080527
  3. COATED PDS [Suspect]
     Route: 048
     Dates: start: 20080401, end: 20080523
  4. CLOPIDOGREL [Concomitant]
     Indication: CORONARY ARTERIAL STENT INSERTION
     Route: 048
  5. METOPROLOL SUCCINATE [Concomitant]
     Indication: BLOOD PRESSURE
     Route: 048
  6. ATORVASTATIN CALCIUM [Concomitant]
     Indication: DRUG USE FOR UNKNOWN INDICATION
     Route: 048

REACTIONS (5)
  - DIZZINESS [None]
  - FLUSHING [None]
  - HIGH DENSITY LIPOPROTEIN DECREASED [None]
  - NAUSEA [None]
  - VOMITING [None]
